FAERS Safety Report 4709402-7 (Version None)
Quarter: 2005Q3

REPORT INFORMATION
  Report Type: 
  Country: None (occurrence: None)
  Receive Date: 20050706
  Receipt Date: 20050627
  Transmission Date: 20060218
  Serious: Yes (Hospitalization)
  Sender: FDA-Public Use
  Company Number: BR-2005-011680

PATIENT
  Age: 22 Year
  Sex: Female

DRUGS (1)
  1. YASMIN [Suspect]
     Dosage: 1 TAB(S), ORAL
     Route: 048
     Dates: start: 20050401, end: 20050601

REACTIONS (1)
  - GASTRIC ULCER [None]
